FAERS Safety Report 4393977-4 (Version None)
Quarter: 2004Q3

REPORT INFORMATION
  Report Type: 
  Country: None (occurrence: None)
  Receive Date: 20040702
  Receipt Date: 20040621
  Transmission Date: 20050211
  Serious: No
  Sender: FDA-Public Use
  Company Number: 04H-163-0264608-00

PATIENT
  Age: 61 Year
  Sex: Female
  Weight: 122 kg

DRUGS (11)
  1. HYDROMORPHONE HCL INJECTION (HYDROMORPHONE HYDROCHLORIDE) [Suspect]
     Indication: POSTOPERATIVE ANALGESIA
     Dosage: SEE IMAGE
     Route: 008
  2. SODIUM BICITRATE [Concomitant]
  3. ONDANSETRON [Concomitant]
  4. RANITIDINE [Concomitant]
  5. OCTOCAINE WITH EPINEPHRINE [Concomitant]
  6. MIDAZOLAM HCL [Concomitant]
  7. FENTANYL [Concomitant]
  8. BUPIVACAINE [Concomitant]
  9. SINEMET [Concomitant]
  10. OMEPRAZOLE [Concomitant]
  11. TRAZODONE HCL [Concomitant]

REACTIONS (2)
  - COMA [None]
  - RESPIRATORY DEPRESSION [None]
